FAERS Safety Report 7411987-7 (Version None)
Quarter: 2011Q2

REPORT INFORMATION
  Report Type: 
  Country: None (occurrence: None)
  Receive Date: 20110413
  Receipt Date: 20081001
  Transmission Date: 20111010
  Serious: Yes (Hospitalization)
  Sender: FDA-Public Use
  Company Number: US-BAYER-2011-029512

PATIENT
  Age: 56 Year
  Sex: Male
  Weight: 73 kg

DRUGS (18)
  1. ISOFLURANE [Concomitant]
     Dosage: UNK
     Dates: start: 20031105, end: 20031105
  2. LIPITOR [Concomitant]
     Dosage: 10 MG, UNK
  3. ALBUMIN (HUMAN) [Concomitant]
     Dosage: 20 ML, UNK
     Dates: start: 20031105, end: 20031105
  4. ANCEF [Concomitant]
     Dosage: UNK
     Dates: start: 20031105, end: 20031105
  5. TRASYLOL [Suspect]
     Indication: CORONARY ARTERY BYPASS
     Dosage: UNK
     Dates: start: 20031105, end: 20031105
  6. ATENOLOL [Concomitant]
     Dosage: 25 MG, QD
  7. MAGNESIUM SULFATE [Concomitant]
     Dosage: 2 UNK, UNK
     Dates: start: 20031105, end: 20031105
  8. RED BLOOD CELLS [Concomitant]
     Indication: CORONARY ARTERY BYPASS
     Dosage: 2 U, UNK
     Dates: start: 20030905, end: 20030905
  9. LIDOCAINE [Concomitant]
     Dosage: UNK
     Dates: start: 20031105, end: 20031105
  10. SODIUM BICARBONATE [Concomitant]
     Dosage: 50 UNK, UNK
     Dates: start: 20031105, end: 20031105
  11. EPINEPHRINE [Concomitant]
     Dosage: 2 UNK, UNK
     Dates: start: 20031105, end: 20031105
  12. ACETYLSALICYLIC ACID SRT [Concomitant]
     Dosage: 325 MG, QD
     Route: 048
     Dates: start: 20031104
  13. PROTAMINE SULFATE [Concomitant]
     Indication: HEPARIN NEUTRALISATION THERAPY
     Dosage: UNK
     Dates: start: 20031105, end: 20031105
  14. VERSED [Concomitant]
     Dosage: UNK
     Dates: start: 20031105, end: 20031105
  15. PAPAVERINE [Concomitant]
     Dosage: 60 MG/100 ML, UNK
     Dates: start: 20031105, end: 20031105
  16. HEPARIN [Concomitant]
     Dosage: 24,000 UNK, UNK
     Dates: start: 20031105, end: 20031105
  17. FENTANYL [Concomitant]
     Dosage: UNK
     Dates: start: 20031105, end: 20031105
  18. LEVOPHED [Concomitant]
     Dosage: 2 UNK, UNK
     Dates: start: 20031105, end: 20031105

REACTIONS (4)
  - INJURY [None]
  - PAIN [None]
  - CEREBROVASCULAR ACCIDENT [None]
  - EMOTIONAL DISTRESS [None]
